FAERS Safety Report 9434286 (Version 1)
Quarter: 2013Q3

REPORT INFORMATION
  Report Type: Spontaneous
  Country: US (occurrence: None)
  Receive Date: 20130731
  Receipt Date: 20130731
  Transmission Date: 20140515
  Serious: No
  Sender: FDA-Public Use
  Company Number: None

PATIENT
  Age: 19 Year
  Sex: Male

DRUGS (2)
  1. BACTRIM [Suspect]
     Dates: start: 20110810, end: 20110819
  2. CEFAZOLIN [Suspect]
     Dates: start: 20110810, end: 20110810

REACTIONS (3)
  - Drug-induced liver injury [None]
  - Liver function test abnormal [None]
  - Jaundice [None]
